FAERS Safety Report 15974294 (Version 1)
Quarter: 2019Q1

REPORT INFORMATION
  Report Type: Spontaneous
  Country: NO (occurrence: NO)
  Receive Date: 20190218
  Receipt Date: 20190218
  Transmission Date: 20190418
  Serious: Yes (Hospitalization)
  Sender: FDA-Public Use
  Company Number: NO-SA-2019SA039058

PATIENT
  Sex: Male

DRUGS (2)
  1. TOUJEO [Suspect]
     Active Substance: INSULIN GLARGINE
     Dosage: 20 U, BID
     Route: 058
  2. TOUJEO [Suspect]
     Active Substance: INSULIN GLARGINE
     Indication: TYPE 2 DIABETES MELLITUS
     Dosage: USE AS AGREED UPON WITH PHYSICIAN (NOS)
     Route: 058
     Dates: start: 201704

REACTIONS (9)
  - Urinary tract infection [Unknown]
  - Blood glucose decreased [Not Recovered/Not Resolved]
  - Glycosylated haemoglobin abnormal [Not Recovered/Not Resolved]
  - Dizziness [Unknown]
  - Blood glucose increased [Unknown]
  - Visual impairment [Unknown]
  - Off label use [Unknown]
  - Sepsis [Unknown]
  - Blood glucose fluctuation [Unknown]
